FAERS Safety Report 8370016-1 (Version None)
Quarter: 2012Q2

REPORT INFORMATION
  Report Type: 
  Country: None (occurrence: None)
  Receive Date: 20120518
  Receipt Date: 20120510
  Transmission Date: 20120825
  Serious: Yes (Hospitalization, Other)
  Sender: FDA-Public Use
  Company Number: DE-UCBSA-057128

PATIENT
  Sex: Male

DRUGS (7)
  1. BELOC [Concomitant]
  2. SPIRONOLACTONE [Concomitant]
  3. NEXIUM [Concomitant]
  4. RAMIPRIL [Concomitant]
  5. MARCUMAR [Concomitant]
  6. KEPPRA [Suspect]
     Dates: start: 20110101
  7. LASIX [Concomitant]

REACTIONS (6)
  - URINARY RETENTION [None]
  - ABDOMINAL PAIN [None]
  - STATUS EPILEPTICUS [None]
  - CONVULSION [None]
  - CHOLECYSTITIS [None]
  - VOMITING [None]
